FAERS Safety Report 25336082 (Version 1)
Quarter: 2025Q2

REPORT INFORMATION
  Report Type: Spontaneous
  Country: US (occurrence: US)
  Receive Date: 20250520
  Receipt Date: 20250520
  Transmission Date: 20250716
  Serious: Yes (Other)
  Sender: BAYER HEALTHCARE PHARMACEUTICALS INC.
  Company Number: US-BAYER-2025A066911

PATIENT
  Age: 76 Year
  Sex: Female

DRUGS (2)
  1. KERENDIA [Suspect]
     Active Substance: FINERENONE
     Dates: start: 202407
  2. KERENDIA [Suspect]
     Active Substance: FINERENONE
     Dates: start: 20241127

REACTIONS (1)
  - Hyperkalaemia [Unknown]
